FAERS Safety Report 4500297-3 (Version None)
Quarter: 2004Q4

REPORT INFORMATION
  Report Type: 
  Country: None (occurrence: None)
  Receive Date: 20041109
  Receipt Date: 20041103
  Transmission Date: 20050328
  Serious: Yes (Death)
  Sender: FDA-Public Use
  Company Number: 210156

PATIENT
  Age: 53 Year
  Sex: Female

DRUGS (11)
  1. XOLAIR [Suspect]
     Indication: ASTHMA
     Dates: start: 20040101
  2. PREDNISONE (PRESNISONE) [Concomitant]
  3. PROTONIX [Concomitant]
  4. AMBIEN [Concomitant]
  5. SINGULAIR [Concomitant]
  6. DITROPAN [Concomitant]
  7. AMARYL [Concomitant]
  8. CALCIUM (CALCIUM NOS) [Concomitant]
  9. ADVAIR (FLUTICASONE PROPIONATE, SALMETEROL XINAFOATE) [Concomitant]
  10. PAXIL [Concomitant]
  11. ATARAX [Concomitant]

REACTIONS (14)
  - BLOOD PRESSURE IMMEASURABLE [None]
  - CARDIAC ARREST [None]
  - CYANOSIS [None]
  - DEPRESSED LEVEL OF CONSCIOUSNESS [None]
  - ELECTROMECHANICAL DISSOCIATION [None]
  - HEART RATE DECREASED [None]
  - INTUBATION COMPLICATION [None]
  - RESPIRATORY ARREST [None]
  - SYNCOPE [None]
  - TREATMENT NONCOMPLIANCE [None]
  - UNRESPONSIVE TO PAIN STIMULI [None]
  - UNRESPONSIVE TO VERBAL STIMULI [None]
  - VENTRICULAR FIBRILLATION [None]
  - VOMITING [None]
